FAERS Safety Report 4645602-2 (Version None)
Quarter: 2005Q2

REPORT INFORMATION
  Report Type: 
  Country: None (occurrence: None)
  Receive Date: 20050331
  Receipt Date: 20050107
  Transmission Date: 20051028
  Serious: Yes (Hospitalization)
  Sender: FDA-Public Use
  Company Number: 05P-163-0285804-00

PATIENT
  Age: 77 Year
  Sex: Female

DRUGS (8)
  1. HUMIRA [Suspect]
     Indication: RHEUMATOID ARTHRITIS
     Dosage: 40 MG, 1 IN 2 WK, SUBCUTANEOUS
     Route: 058
     Dates: start: 20040607, end: 20041231
  2. ATORVASTATIN CALCIUM [Concomitant]
  3. FUROSEMIDE [Concomitant]
  4. ESOMEPRAZOLE [Concomitant]
  5. LISINOPRIL [Concomitant]
  6. RISEDRONATE SODIUM [Concomitant]
  7. LEVOTHYROXINE SODIUM [Concomitant]
  8. PREDNISONE [Concomitant]

REACTIONS (1)
  - PNEUMONIA [None]
